FAERS Safety Report 15495836 (Version 1)
Quarter: 2018Q4

REPORT INFORMATION
  Report Type: Spontaneous
  Country: US (occurrence: US)
  Receive Date: 20181013
  Receipt Date: 20181013
  Transmission Date: 20190205
  Serious: Yes (Hospitalization)
  Sender: FDA-Public Use
  Company Number: US-SENTYNL THERAPEUTICS, INC.  -2055998

PATIENT
  Age: 67 Year
  Sex: Male

DRUGS (1)
  1. LEVORPHANOL TARTRATE. [Suspect]
     Active Substance: LEVORPHANOL TARTRATE
     Indication: NEUROPATHY PERIPHERAL
     Route: 048
     Dates: start: 20180803, end: 201809

REACTIONS (4)
  - Atrial fibrillation [Unknown]
  - Fall [Unknown]
  - Cerebral haemorrhage [Unknown]
  - Vomiting [Unknown]
